FAERS Safety Report 7774541-3 (Version None)
Quarter: 2011Q3

REPORT INFORMATION
  Report Type: 
  Country: None (occurrence: None)
  Receive Date: 20110923
  Receipt Date: 20110923
  Transmission Date: 20111222
  Serious: Yes (Other)
  Sender: FDA-Public Use
  Company Number: None

PATIENT
  Age: 41 Year
  Sex: Female
  Weight: 90.718 kg

DRUGS (1)
  1. BROMPHENIRAMINE MALEATE + PSEUDOEPHEDRINE HCL [Suspect]
     Indication: HYPERSENSITIVITY
     Dosage: ONE DAILY
     Dates: start: 20110728, end: 20110922

REACTIONS (4)
  - BLOOD PRESSURE INCREASED [None]
  - HEART RATE INCREASED [None]
  - PRODUCT QUALITY ISSUE [None]
  - WEIGHT INCREASED [None]
